FAERS Safety Report 5888945-7 (Version None)
Quarter: 2008Q3

REPORT INFORMATION
  Report Type: 
  Country: None (occurrence: None)
  Receive Date: 20080919
  Receipt Date: 20080909
  Transmission Date: 20090109
  Serious: Yes (Hospitalization, Other)
  Sender: FDA-Public Use
  Company Number: US-ALLERGAN-0811237US

PATIENT
  Sex: Male

DRUGS (2)
  1. LUMIGAN [Suspect]
     Indication: GLAUCOMA
     Dosage: 1 GTT, QHS
     Route: 047
     Dates: start: 20080401
  2. BETAGAN [Concomitant]
     Indication: GLAUCOMA
     Dosage: 1 GTT, QAM
     Route: 047

REACTIONS (5)
  - BLOOD AMYLASE INCREASED [None]
  - GALLBLADDER CHOLESTEROLOSIS [None]
  - LIPASE INCREASED [None]
  - MALAISE [None]
  - PANCREATITIS [None]
